FAERS Safety Report 8580259-X (Version None)
Quarter: 2012Q3

REPORT INFORMATION
  Report Type: 
  Country: None (occurrence: None)
  Receive Date: 20120808
  Receipt Date: 20120802
  Transmission Date: 20120928
  Serious: Yes (Hospitalization)
  Sender: FDA-Public Use
  Company Number: GXKR2012DE002517

PATIENT

DRUGS (2)
  1. ASPIRIN [Suspect]
     Indication: CORONARY ANGIOPLASTY
     Route: 048
     Dates: start: 20120701
  2. PLAVIX [Suspect]
     Indication: CORONARY ANGIOPLASTY
     Route: 048
     Dates: start: 20120701

REACTIONS (1)
  - CEREBRAL HAEMORRHAGE TRAUMATIC [None]
